FAERS Safety Report 9134771 (Version 2)
Quarter: 2013Q1

REPORT INFORMATION
  Report Type: Spontaneous
  Country: BR (occurrence: BR)
  Receive Date: 20130304
  Receipt Date: 20130322
  Transmission Date: 20140127
  Serious: Yes (Other)
  Sender: FDA-Public Use
  Company Number: BR-JNJFOC-20130212607

PATIENT
  Age: 51 None
  Sex: Female
  Weight: 79 kg

DRUGS (8)
  1. XARELTO [Suspect]
     Indication: ATRIAL FIBRILLATION
     Route: 048
     Dates: start: 201207, end: 201210
  2. XARELTO [Suspect]
     Indication: CEREBROVASCULAR ACCIDENT PROPHYLAXIS
     Route: 048
     Dates: start: 201207, end: 201210
  3. AAS [Interacting]
     Indication: PRODUCT USED FOR UNKNOWN INDICATION
     Route: 048
     Dates: start: 201301
  4. CORDIL [Concomitant]
     Indication: ARRHYTHMIA
     Route: 048
     Dates: start: 201301
  5. SELOZOK [Concomitant]
     Indication: ARRHYTHMIA
     Route: 048
     Dates: start: 201205
  6. LOSARTAN [Concomitant]
     Indication: HYPERTENSION
     Route: 048
     Dates: start: 2011
  7. AMIODARONE [Concomitant]
     Indication: ARRHYTHMIA
     Route: 048
     Dates: start: 2011
  8. LEVOTHYROXINE [Concomitant]
     Indication: HYPOTHYROIDISM
     Route: 048
     Dates: start: 2011

REACTIONS (4)
  - Lupus-like syndrome [Unknown]
  - Pruritus [Not Recovered/Not Resolved]
  - Gingival bleeding [Recovered/Resolved]
  - Drug interaction [Unknown]
